FAERS Safety Report 14799767 (Version 1)
Quarter: 2018Q2

REPORT INFORMATION
  Report Type: Spontaneous
  Country: CZ (occurrence: CZ)
  Receive Date: 20180424
  Receipt Date: 20180424
  Transmission Date: 20180711
  Serious: Yes (Hospitalization, Other)
  Sender: FDA-Public Use
  Company Number: CZ-AMGEN-CZESP2018052519

PATIENT
  Age: 56 Year
  Sex: Female
  Weight: 54 kg

DRUGS (5)
  1. CALCIUM [Concomitant]
     Active Substance: CALCIUM
  2. PROLIA [Suspect]
     Active Substance: DENOSUMAB
     Indication: PRODUCT USED FOR UNKNOWN INDICATION
     Dosage: UNK, Q6MO
     Route: 058
     Dates: start: 20130530, end: 20161205
  3. EUTHYROX [Concomitant]
     Active Substance: LEVOTHYROXINE SODIUM
  4. VIGANTOL [Concomitant]
     Active Substance: CHOLECALCIFEROL
     Dosage: UNK UNK, 2 TIMES/WK
  5. CONCOR [Concomitant]
     Active Substance: BISOPROLOL FUMARATE

REACTIONS (4)
  - Fall [Unknown]
  - Compression fracture [Unknown]
  - Wrist fracture [Unknown]
  - Rebound effect [Unknown]

NARRATIVE: CASE EVENT DATE: 20140606
